FAERS Safety Report 8583102-8 (Version None)
Quarter: 2012Q3

REPORT INFORMATION
  Report Type: 
  Country: None (occurrence: None)
  Receive Date: 20120809
  Receipt Date: 20120803
  Transmission Date: 20120928
  Serious: Yes (Death)
  Sender: FDA-Public Use
  Company Number: US-PURDUE-USA-2012-0089521

PATIENT
  Sex: Male

DRUGS (1)
  1. INTERMEZZO [Suspect]
     Indication: INSOMNIA
     Dosage: 1.75 MG, SEE TEXT
     Route: 060
     Dates: start: 20120619, end: 20120621

REACTIONS (3)
  - CARDIOMYOPATHY [None]
  - INCORRECT DOSE ADMINISTERED [None]
  - SUDDEN CARDIAC DEATH [None]
